FAERS Safety Report 4336210-1 (Version None)
Quarter: 2004Q2

REPORT INFORMATION
  Report Type: 
  Country: None (occurrence: None)
  Receive Date: 20040406
  Receipt Date: 20040322
  Transmission Date: 20050107
  Serious: Yes (Hospitalization)
  Sender: FDA-Public Use
  Company Number: 2004AP00510

PATIENT
  Age: 52 Year
  Sex: Female

DRUGS (4)
  1. IRESSA [Suspect]
     Indication: NON-SMALL CELL LUNG CANCER
     Dosage: 250 MG DAILY PO
     Route: 048
     Dates: start: 20031007, end: 20031111
  2. IRESSA [Suspect]
     Indication: NON-SMALL CELL LUNG CANCER
     Dosage: 250 MG DAILY PO
     Route: 048
     Dates: start: 20031118
  3. GASTER [Suspect]
     Indication: ABDOMINAL PAIN UPPER
     Dosage: 40 MG DAILY PO
     Route: 048
     Dates: start: 20031104, end: 20031109
  4. RADIATION THERAPY [Concomitant]

REACTIONS (5)
  - ABDOMINAL PAIN UPPER [None]
  - INFECTION [None]
  - INSOMNIA [None]
  - NAUSEA [None]
  - PYREXIA [None]
